FAERS Safety Report 5049338-8 (Version None)
Quarter: 2006Q3

REPORT INFORMATION
  Report Type: 
  Country: None (occurrence: None)
  Receive Date: 20060712
  Receipt Date: 20020425
  Transmission Date: 20061208
  Serious: Yes (Hospitalization)
  Sender: FDA-Public Use
  Company Number: US-GLAXOSMITHKLINE-A0367026A

PATIENT
  Age: 42 Year
  Sex: Male
  Weight: 54.1 kg

DRUGS (12)
  1. LOTRONEX [Suspect]
     Indication: IRRITABLE BOWEL SYNDROME
     Dosage: 1MG TWICE PER DAY
     Route: 048
     Dates: start: 20000701, end: 20000901
  2. NEURONTIN [Concomitant]
  3. KLONOPIN [Concomitant]
  4. RESTORIL [Concomitant]
  5. HUMULIN N [Concomitant]
  6. PRILOSEC [Concomitant]
  7. EXLAX [Concomitant]
  8. IMODIUM [Concomitant]
  9. MORPHINE [Concomitant]
     Dosage: 30MG TWICE PER DAY
  10. HALCION [Concomitant]
  11. CARDIZEM [Concomitant]
  12. ACTOS [Concomitant]

REACTIONS (26)
  - ABDOMINAL DISTENSION [None]
  - ABDOMINAL PAIN [None]
  - ABDOMINAL PAIN UPPER [None]
  - ANOREXIA [None]
  - ANXIETY [None]
  - ASTHENIA [None]
  - CONSTIPATION [None]
  - DEPRESSION [None]
  - DIABETIC GASTROPARESIS [None]
  - DIABETIC NEUROPATHY [None]
  - DIARRHOEA [None]
  - DISEASE RECURRENCE [None]
  - DRUG DEPENDENCE [None]
  - DYSPEPSIA [None]
  - FAECES DISCOLOURED [None]
  - FATIGUE [None]
  - FLATULENCE [None]
  - INSOMNIA [None]
  - INTESTINAL OBSTRUCTION [None]
  - LETHARGY [None]
  - NAUSEA [None]
  - NIGHT SWEATS [None]
  - PAIN [None]
  - VOMITING [None]
  - WEIGHT DECREASED [None]
  - WEIGHT INCREASED [None]
